FAERS Safety Report 13228247 (Version 1)
Quarter: 2017Q1

REPORT INFORMATION
  Report Type: Spontaneous
  Country: US (occurrence: US)
  Receive Date: 20170213
  Receipt Date: 20170213
  Transmission Date: 20170428
  Serious: No
  Sender: FDA-Public Use
  Company Number: US-ROCHE-1845284

PATIENT
  Sex: Female

DRUGS (1)
  1. XOLAIR [Suspect]
     Active Substance: OMALIZUMAB
     Indication: IDIOPATHIC URTICARIA
     Route: 065

REACTIONS (5)
  - Paraesthesia [Unknown]
  - Lipoatrophy [Unknown]
  - Urticaria [Unknown]
  - Injection site necrosis [Unknown]
  - Pain in extremity [Unknown]
